FAERS Safety Report 17201655 (Version 1)
Quarter: 2019Q4

REPORT INFORMATION
  Report Type: Spontaneous
  Country: US (occurrence: US)
  Receive Date: 20191203
  Receipt Date: 20191203
  Transmission Date: 20200122
  Serious: Yes (Congenital Anomaly)
  Sender: FDA-Public Use
  Company Number: None

PATIENT
  Age: 0 Day
  Sex: Male
  Weight: 11.79 kg

DRUGS (1)
  1. ONDANSETRON 8MG [Suspect]
     Active Substance: ONDANSETRON
     Indication: HYPEREMESIS GRAVIDARUM
     Route: 048
     Dates: start: 20161201, end: 20170301

REACTIONS (2)
  - Syndactyly [None]
  - Congenital iris anomaly [None]

NARRATIVE: CASE EVENT DATE: 20170706
